FAERS Safety Report 7303342-5 (Version None)
Quarter: 2011Q1

REPORT INFORMATION
  Report Type: 
  Country: None (occurrence: None)
  Receive Date: 20110221
  Receipt Date: 20110209
  Transmission Date: 20110831
  Serious: Yes (Other)
  Sender: FDA-Public Use
  Company Number: FR-ELI_LILLY_AND_COMPANY-FR201102002354

PATIENT
  Sex: Female

DRUGS (3)
  1. PROZAC [Suspect]
     Dosage: UNK, UNK
     Route: 048
  2. MEDIATOR [Concomitant]
     Indication: OVERWEIGHT
     Dosage: 150 MG, 3/D
     Route: 048
  3. ISOMERIDE [Concomitant]
     Route: 048
     Dates: end: 19990101

REACTIONS (2)
  - MITRAL VALVE INCOMPETENCE [None]
  - AORTIC VALVE INCOMPETENCE [None]
